FAERS Safety Report 8618087 (Version 2)
Quarter: 2013Q1

REPORT INFORMATION
  Report Type: Spontaneous
  Country: US (occurrence: US)
  Receive Date: 20120615
  Receipt Date: 20130109
  Transmission Date: 20140127
  Serious: Yes (Other)
  Sender: FDA-Public Use
  Company Number: US-ROCHE-783683

PATIENT
  Sex: Male
  Weight: 79.9 kg

DRUGS (1)
  1. ACCUTANE [Suspect]
     Indication: ACNE CYSTIC
     Route: 048
     Dates: start: 19960819, end: 199612

REACTIONS (8)
  - Inflammatory bowel disease [Unknown]
  - Emotional distress [Unknown]
  - Crohn^s disease [Unknown]
  - Colitis ulcerative [Unknown]
  - Small intestinal obstruction [Unknown]
  - Depression [Unknown]
  - Diverticulitis [Unknown]
  - Osteoporosis [Unknown]
